FAERS Safety Report 6029770-6 (Version None)
Quarter: 2008Q4

REPORT INFORMATION
  Report Type: 
  Country: None (occurrence: None)
  Receive Date: 20081222
  Receipt Date: 20080917
  Transmission Date: 20090506
  Serious: No
  Sender: FDA-Public Use
  Company Number: US-WYE-H06035508

PATIENT
  Age: 59 Year
  Sex: Female
  Weight: 67.19 kg

DRUGS (5)
  1. PRISTIQ [Suspect]
     Indication: ANXIETY
     Dosage: 50 MG 1 X PER 1 DAY, ORAL
     Route: 048
     Dates: start: 20080913
  2. ACTOS [Concomitant]
  3. ZETIA [Concomitant]
  4. PROVIGIL [Concomitant]
  5. LANTUS [Concomitant]

REACTIONS (3)
  - BLOOD GLUCOSE INCREASED [None]
  - DRY MOUTH [None]
  - FATIGUE [None]
